FAERS Safety Report 5015222-9 (Version None)
Quarter: 2006Q2

REPORT INFORMATION
  Report Type: 
  Country: None (occurrence: None)
  Receive Date: 20060426
  Receipt Date: 20060323
  Transmission Date: 20061013
  Serious: No
  Sender: FDA-Public Use
  Company Number: 223392

PATIENT
  Age: 14 Year
  Sex: Male
  Weight: 90.7 kg

DRUGS (1)
  1. XOLAIR [Suspect]
     Indication: ASTHMA
     Dosage: 300 MG, Q2W, SUBCUTANEOUS
     Route: 058

REACTIONS (2)
  - ARTHRALGIA [None]
  - INJECTION SITE PAIN [None]
